FAERS Safety Report 4443178-6 (Version None)
Quarter: 2004Q3

REPORT INFORMATION
  Report Type: 
  Country: None (occurrence: None)
  Receive Date: 20040901
  Receipt Date: 20040819
  Transmission Date: 20050211
  Serious: Yes (Other)
  Sender: FDA-Public Use
  Company Number: 2004051530

PATIENT
  Age: 35 Year
  Sex: Male

DRUGS (3)
  1. RELPAX [Suspect]
     Indication: MIGRAINE
     Dosage: 40 MG ORAL
     Route: 048
     Dates: start: 20031001
  2. VALPROATE SODIUM [Concomitant]
  3. CALCIUM CHANNEL BLOCKERS [Concomitant]

REACTIONS (2)
  - OPTIC NEUROPATHY [None]
  - VISUAL ACUITY REDUCED [None]
